FAERS Safety Report 7126777-2 (Version None)
Quarter: 2010Q4

REPORT INFORMATION
  Report Type: 
  Country: None (occurrence: None)
  Receive Date: 20101129
  Receipt Date: 20091113
  Transmission Date: 20110411
  Serious: No
  Sender: FDA-Public Use
  Company Number: US-PFIZER INC-2009298761

PATIENT
  Sex: Male
  Weight: 71.7 kg

DRUGS (5)
  1. VIAGRA [Suspect]
     Indication: ERECTILE DYSFUNCTION
     Dosage: 50 MG, UNK
     Route: 048
     Dates: start: 20060101
  2. CRESTOR [Concomitant]
     Dosage: UNK
  3. CELEXA [Concomitant]
     Indication: DEPRESSION
     Dosage: 20 MG, 1X/DAY
     Dates: start: 20080101
  4. LODINE [Concomitant]
     Indication: ARTHRITIS
     Dosage: 300 MG, 1X/DAY
     Route: 048
     Dates: start: 20040101
  5. OMEPRAZOLE [Concomitant]
     Dosage: 20 MG, 1X/DAY

REACTIONS (2)
  - DRUG INEFFECTIVE [None]
  - EXPIRED DRUG ADMINISTERED [None]
